FAERS Safety Report 11868828 (Version 2)
Quarter: 2016Q1

REPORT INFORMATION
  Report Type: Spontaneous
  Country: US (occurrence: US)
  Receive Date: 20151225
  Receipt Date: 20160120
  Transmission Date: 20160526
  Serious: No
  Sender: FDA-Public Use
  Company Number: US-B.I. PHARMACEUTICALS,INC./RIDGEFIELD-2015-BI-69800BP

PATIENT
  Sex: Male
  Weight: 66.22 kg

DRUGS (2)
  1. OFEV [Suspect]
     Active Substance: NINTEDANIB
     Indication: IDIOPATHIC PULMONARY FIBROSIS
     Dosage: 300 MG
     Route: 048
     Dates: start: 20151209
  2. ROBUTUSSIN [Concomitant]
     Indication: COUGH
     Route: 065

REACTIONS (4)
  - Sluggishness [Recovered/Resolved]
  - Cardiac disorder [Unknown]
  - Disability [Unknown]
  - Dyspnoea [Recovered/Resolved]

NARRATIVE: CASE EVENT DATE: 20151211
